FAERS Safety Report 13027862 (Version 4)
Quarter: 2018Q3

REPORT INFORMATION
  Report Type: Report from Study
  Country: BR (occurrence: BR)
  Receive Date: 20161214
  Receipt Date: 20180831
  Transmission Date: 20181010
  Serious: Yes (Hospitalization, Other)
  Sender: FDA-Public Use
  Company Number: PHHY2016BR162820

PATIENT
  Age: 26 Year
  Sex: Female
  Weight: 60 kg

DRUGS (5)
  1. EXJADE [Suspect]
     Active Substance: DEFERASIROX
     Indication: THALASSAEMIA
     Dosage: 500 MG, UNK (4 TABLETS IN A DAY)
     Route: 048
     Dates: start: 201401, end: 201611
  2. EXJADE [Suspect]
     Active Substance: DEFERASIROX
     Dosage: 2000 MG, QD
     Route: 048
  3. ASPIRIN. [Concomitant]
     Active Substance: ASPIRIN
     Indication: THROMBOSIS
  4. FOLIC ACID. [Concomitant]
     Active Substance: FOLIC ACID
     Indication: THALASSAEMIA
     Dosage: 3 DF, QD (3 TABLETS IN A DAY)
     Route: 065
     Dates: start: 1990
  5. ASPIRIN. [Concomitant]
     Active Substance: ASPIRIN
     Indication: THALASSAEMIA
     Dosage: 1 DF, QD
     Route: 065

REACTIONS (7)
  - Benign ovarian tumour [Recovered/Resolved]
  - Hepatic enzyme increased [Unknown]
  - Malaise [Recovering/Resolving]
  - Gastric ulcer [Unknown]
  - Chikungunya virus infection [Recovered/Resolved with Sequelae]
  - Pain [Recovering/Resolving]
  - Hepatomegaly [Unknown]

NARRATIVE: CASE EVENT DATE: 201506
